FAERS Safety Report 9476346 (Version 1)
Quarter: 2013Q3

REPORT INFORMATION
  Report Type: Spontaneous
  Country: FR (occurrence: FR)
  Receive Date: 20130826
  Receipt Date: 20130826
  Transmission Date: 20140515
  Serious: Yes (Life-Threatening, Other)
  Sender: FDA-Public Use
  Company Number: FR-JNJFOC-20130813088

PATIENT
  Age: 74 Year
  Sex: Male
  Weight: 86 kg

DRUGS (8)
  1. XARELTO [Suspect]
     Indication: HIP SURGERY
     Route: 048
     Dates: start: 20130107, end: 20130304
  2. XARELTO [Suspect]
     Indication: THROMBOSIS PROPHYLAXIS
     Route: 048
     Dates: start: 20130107, end: 20130304
  3. PARACETAMOL [Concomitant]
     Route: 048
  4. BI-PROFENID [Concomitant]
     Route: 048
     Dates: start: 201301
  5. NISIS [Concomitant]
     Route: 048
  6. TAHOR [Concomitant]
     Route: 048
  7. IMOVANE [Concomitant]
     Route: 048
  8. SEROPLEX [Concomitant]
     Route: 048

REACTIONS (2)
  - Drug ineffective [Recovered/Resolved]
  - Pulmonary infarction [Recovered/Resolved]
